FAERS Safety Report 10872824 (Version 1)
Quarter: 2015Q1

REPORT INFORMATION
  Report Type: Spontaneous
  Country: US (occurrence: None)
  Receive Date: 20150223
  Receipt Date: 20150223
  Transmission Date: 20150721
  Serious: Yes (Death)
  Sender: FDA-Public Use
  Company Number: None

PATIENT
  Age: 70 Year
  Sex: Female
  Weight: 56.9 kg

DRUGS (5)
  1. ALTEPLASE (CATHFLO) [Concomitant]
  2. ASPIRIN. [Concomitant]
     Active Substance: ASPIRIN
  3. CEFEPIME [Suspect]
     Active Substance: CEFEPIME\CEFEPIME HYDROCHLORIDE
     Indication: PNEUMONIA
     Route: 042
     Dates: start: 20141102, end: 20141106
  4. HEPARIN [Concomitant]
     Active Substance: HEPARIN SODIUM
  5. CEFEPIME [Suspect]
     Active Substance: CEFEPIME\CEFEPIME HYDROCHLORIDE
     Indication: EVIDENCE BASED TREATMENT
     Route: 042
     Dates: start: 20141102, end: 20141106

REACTIONS (2)
  - Haemolytic anaemia [None]
  - Cerebral haemorrhage [None]
